FAERS Safety Report 6594965-X (Version None)
Quarter: 2010Q1

REPORT INFORMATION
  Report Type: 
  Country: None (occurrence: None)
  Receive Date: 20100218
  Receipt Date: 20100218
  Transmission Date: 20100710
  Serious: Yes (Hospitalization)
  Sender: FDA-Public Use
  Company Number: None

PATIENT
  Sex: Female
  Weight: 103.65 kg

DRUGS (2)
  1. FLUOROURACIL [Suspect]
     Dosage: 4932 MG
  2. CISPLATIN [Suspect]
     Dosage: 124 MG

REACTIONS (3)
  - ANAEMIA [None]
  - DIARRHOEA [None]
  - HYPOKALAEMIA [None]
